FAERS Safety Report 9491252 (Version 13)
Quarter: 2015Q1

REPORT INFORMATION
  Report Type: Report from Study
  Country: JP (occurrence: JP)
  Receive Date: 20130830
  Receipt Date: 20150114
  Transmission Date: 20150721
  Serious: Yes (Death, Life-Threatening, Hospitalization, Disabling, Other)
  Sender: FDA-Public Use
  Company Number: JP-PFIZER INC-2013247472

PATIENT
  Age: 43 Year
  Sex: Female
  Weight: 70.2 kg

DRUGS (9)
  1. XALKORI [Suspect]
     Active Substance: CRIZOTINIB
     Dosage: 250 MG, 2X/DAY
     Route: 048
     Dates: start: 20130626, end: 20130807
  2. BLOPRESS [Concomitant]
     Active Substance: CANDESARTAN CILEXETIL
     Dosage: 4 MG, 1X/DAY
     Route: 048
  3. XALKORI [Suspect]
     Active Substance: CRIZOTINIB
     Dosage: 250 MG, 2X/DAY
     Route: 048
     Dates: start: 20130821, end: 20131219
  4. LASIX [Concomitant]
     Active Substance: FUROSEMIDE
     Dosage: 20 MG, 1X/DAY
     Route: 048
  5. PARIET [Concomitant]
     Active Substance: RABEPRAZOLE SODIUM
     Dosage: 10 MG, 1X/DAY
     Route: 048
  6. XALKORI [Suspect]
     Active Substance: CRIZOTINIB
     Indication: NON-SMALL CELL LUNG CANCER
     Dosage: 250 MG, 2X/DAY
     Route: 048
     Dates: start: 20130314, end: 20130319
  7. XALKORI [Suspect]
     Active Substance: CRIZOTINIB
     Dosage: 200 MG, 2X/DAY
     Route: 048
     Dates: start: 20130507, end: 20130625
  8. CODEINE PHOSPHATE [Concomitant]
     Active Substance: CODEINE PHOSPHATE
     Dosage: 20 MG, 3X/DAY
     Route: 048
  9. XALKORI [Suspect]
     Active Substance: CRIZOTINIB
     Dosage: 200 MG, 1X/DAY
     Route: 048
     Dates: start: 20130328, end: 20130506

REACTIONS (6)
  - Disease progression [Fatal]
  - Non-small cell lung cancer [Fatal]
  - Renal disorder [Not Recovered/Not Resolved]
  - Cardiac failure [Recovering/Resolving]
  - Obstructive airways disorder [Not Recovered/Not Resolved]
  - Cardiac tamponade [Not Recovered/Not Resolved]

NARRATIVE: CASE EVENT DATE: 20130318
